FAERS Safety Report 7421317-2 (Version None)
Quarter: 2011Q2

REPORT INFORMATION
  Report Type: 
  Country: None (occurrence: None)
  Receive Date: 20110418
  Receipt Date: 20110404
  Transmission Date: 20111010
  Serious: Yes (Hospitalization)
  Sender: FDA-Public Use
  Company Number: FR-JNJFOC-20110401960

PATIENT
  Age: 33 Year
  Sex: Female

DRUGS (6)
  1. REMICADE [Suspect]
     Indication: CROHN'S DISEASE
     Route: 042
  2. REMICADE [Suspect]
     Route: 042
  3. HYDROCORTISONE HEMISUCCINATE [Concomitant]
     Indication: PREMEDICATION
     Route: 065
  4. PENTASA [Concomitant]
  5. REMICADE [Suspect]
     Route: 042
  6. PURINETHOL [Concomitant]

REACTIONS (9)
  - BRADYCARDIA [None]
  - RASH MACULO-PAPULAR [None]
  - LOSS OF CONSCIOUSNESS [None]
  - TONGUE OEDEMA [None]
  - LIP OEDEMA [None]
  - INFUSION RELATED REACTION [None]
  - MALAISE [None]
  - BLOOD PRESSURE DECREASED [None]
  - RASH [None]
